FAERS Safety Report 19157749 (Version 2)
Quarter: 2021Q2

REPORT INFORMATION
  Report Type: Report from Study
  Country: GB (occurrence: GB)
  Receive Date: 20210420
  Receipt Date: 20210528
  Transmission Date: 20210717
  Serious: Yes (Other)
  Sender: FDA-Public Use
  Company Number: NVSC2021GB087336

PATIENT
  Sex: Female

DRUGS (1)
  1. OMNITROPE [Suspect]
     Active Substance: SOMATROPIN
     Indication: PRODUCT USED FOR UNKNOWN INDICATION
     Dosage: 0.8 MG, QD
     Route: 058

REACTIONS (8)
  - Fatigue [Unknown]
  - Blood iron decreased [Unknown]
  - Pain [Unknown]
  - Neoplasm [Unknown]
  - Product supply issue [Unknown]
  - Product dose omission issue [Unknown]
  - Neoplasm progression [Unknown]
  - Vitamin D decreased [Unknown]
